FAERS Safety Report 11983263 (Version 5)
Quarter: 2018Q2

REPORT INFORMATION
  Report Type: Spontaneous
  Country: CN (occurrence: CN)
  Receive Date: 20160201
  Receipt Date: 20180508
  Transmission Date: 20180711
  Serious: Yes (Other)
  Sender: FDA-Public Use
  Company Number: CN-PFIZER INC-2016055220

PATIENT
  Age: 58 Year
  Sex: Male

DRUGS (2)
  1. PROPOFOL. [Concomitant]
     Active Substance: PROPOFOL
     Dosage: 80 MG, UNK
     Route: 040
  2. ATROPINE. [Suspect]
     Active Substance: ATROPINE
     Indication: BRADYCARDIA
     Dosage: 0.5 MG, SINGLE
     Route: 042

REACTIONS (7)
  - Agitation [Recovered/Resolved]
  - Anticholinergic syndrome [Recovered/Resolved]
  - Oxygen saturation decreased [Recovered/Resolved]
  - Irregular breathing [Recovered/Resolved]
  - Loss of consciousness [Recovered/Resolved]
  - Flushing [Recovered/Resolved]
  - Hyperhidrosis [Recovered/Resolved]
